FAERS Safety Report 11807780 (Version 1)
Quarter: 2015Q4

REPORT INFORMATION
  Report Type: Other
  Country: DE (occurrence: DE)
  Receive Date: 20151207
  Receipt Date: 20151207
  Transmission Date: 20160305
  Serious: Yes (Hospitalization)
  Sender: FDA-Public Use
  Company Number: DE-MYLANLABS-2015M1042431

PATIENT

DRUGS (19)
  1. SIMVASTATIN. [Concomitant]
     Active Substance: SIMVASTATIN
     Dosage: 40 MG, UNK
     Route: 048
     Dates: end: 20141020
  2. MIRTAZAPIN [Suspect]
     Active Substance: MIRTAZAPINE
     Dosage: 30 MG, QD (7.5 -30MG/D)
     Route: 048
     Dates: start: 20140711, end: 20140722
  3. AMLODIPINE [Concomitant]
     Active Substance: AMLODIPINE BESYLATE
     Dosage: 10 MG, UNK
     Route: 048
  4. ALLOPURINOL. [Concomitant]
     Active Substance: ALLOPURINOL
     Dosage: 300 MG, UNK
     Route: 048
     Dates: end: 20141027
  5. VENLAFAXIN [Suspect]
     Active Substance: VENLAFAXINE HYDROCHLORIDE
     Dosage: 75 MG, QD
     Route: 048
     Dates: start: 20141014, end: 20141015
  6. OLANZAPIN [Suspect]
     Active Substance: OLANZAPINE
     Dosage: 5 MG, QD
     Route: 048
     Dates: start: 20140924, end: 20141004
  7. BIFITERAL [Concomitant]
     Active Substance: LACTULOSE
     Dosage: 15 ML, UNK
     Route: 048
     Dates: start: 20140724
  8. MIRTAZAPIN [Suspect]
     Active Substance: MIRTAZAPINE
     Dosage: 45 MG, QD
     Route: 048
     Dates: start: 20140723, end: 20140924
  9. LORAZEPAM. [Concomitant]
     Active Substance: LORAZEPAM
     Dosage: 2 MG, UNK
     Route: 048
     Dates: start: 20140627, end: 20140728
  10. OLANZAPIN [Suspect]
     Active Substance: OLANZAPINE
     Dosage: 15 MG, QD
     Route: 048
     Dates: start: 20140819, end: 20140920
  11. FOLSAEURE [Concomitant]
     Active Substance: FOLIC ACID
     Dosage: 10 MG, UNK
     Route: 048
     Dates: start: 20140819, end: 20141028
  12. OLANZAPIN [Suspect]
     Active Substance: OLANZAPINE
     Dosage: 10 MG, QD
     Route: 048
     Dates: start: 20140921, end: 20140923
  13. VENLAFAXIN [Suspect]
     Active Substance: VENLAFAXINE HYDROCHLORIDE
     Dosage: 150 MG, QD (37.5-150 MG/D)
     Route: 048
     Dates: start: 20140808, end: 20140826
  14. VENLAFAXIN [Suspect]
     Active Substance: VENLAFAXINE HYDROCHLORIDE
     Dosage: 37.5 MG, QD
     Route: 048
     Dates: start: 20141016, end: 20141020
  15. OLANZAPIN [Suspect]
     Active Substance: OLANZAPINE
     Dosage: 10 MG, QD (2.5-10MG/D)
     Route: 048
     Dates: start: 20140711, end: 20140818
  16. RAMIPRIL. [Concomitant]
     Active Substance: RAMIPRIL
     Dosage: 10 MG, UNK
     Route: 048
  17. VENLAFAXIN [Suspect]
     Active Substance: VENLAFAXINE HYDROCHLORIDE
     Dosage: 225 MG, QD
     Route: 048
     Dates: start: 20140827, end: 20140924
  18. VENLAFAXIN [Suspect]
     Active Substance: VENLAFAXINE HYDROCHLORIDE
     Dosage: 150 MG, QD
     Route: 048
     Dates: start: 20140925, end: 20141013
  19. KALINOR                            /00031402/ [Concomitant]
     Active Substance: POTASSIUM CITRATE
     Dosage: 1800 MG, UNK
     Route: 048
     Dates: start: 20140809

REACTIONS (1)
  - Parkinsonism [Recovered/Resolved]

NARRATIVE: CASE EVENT DATE: 20140917
